FAERS Safety Report 14119530 (Version 1)
Quarter: 2017Q4

REPORT INFORMATION
  Report Type: Spontaneous
  Country: GB (occurrence: GB)
  Receive Date: 20171024
  Receipt Date: 20171024
  Transmission Date: 20180321
  Serious: Yes (Other)
  Sender: FDA-Public Use
  Company Number: GB-ACCORD-060012

PATIENT
  Age: 78 Year
  Sex: Female
  Weight: 72 kg

DRUGS (14)
  1. DEEP RELIEF [Concomitant]
     Dates: start: 20170515
  2. E45 [Concomitant]
     Active Substance: LANOLIN\LIGHT MINERAL OIL\PARAFFIN
     Dates: start: 20160720
  3. AMITRIPTYLINE [Suspect]
     Active Substance: AMITRIPTYLINE
     Indication: PRODUCT USED FOR UNKNOWN INDICATION
     Dates: start: 20170928
  4. CALCIPOTRIOL [Concomitant]
     Active Substance: CALCIPOTRIENE
     Indication: PRURITUS
     Dates: start: 20170928
  5. CANDESARTAN. [Concomitant]
     Active Substance: CANDESARTAN
     Dates: start: 20170515
  6. PARACETAMOL [Concomitant]
     Active Substance: ACETAMINOPHEN
     Dosage: TAKE 1 OR 2, 2 TIMES A DAY
     Dates: start: 20170515
  7. VOLTAROL [Concomitant]
     Active Substance: DICLOFENAC SODIUM
     Dates: start: 20170510
  8. OMEPRAZOLE. [Concomitant]
     Active Substance: OMEPRAZOLE
     Dosage: 1 OR 2 DAILY
     Dates: start: 20170515
  9. OTOMIZE [Concomitant]
     Active Substance: DEXAMETHASONE\NEOMYCIN SULFATE
     Dosage: USE AS DIRECTED
     Dates: start: 20170911, end: 20170912
  10. TRAMADOL. [Concomitant]
     Active Substance: TRAMADOL
     Indication: PAIN
     Dosage: TAKE 1 OR 2, NOT MORE THAN 4 TIMES PER DAY
     Dates: start: 20170928
  11. ALPHOSYL [Concomitant]
     Dates: start: 20170911, end: 20170925
  12. BENDROFLUMETHIAZIDE [Concomitant]
     Active Substance: BENDROFLUMETHIAZIDE
     Dosage: EACH MORNING
     Dates: start: 20170515
  13. COAL TAR. [Concomitant]
     Active Substance: COAL TAR
     Indication: SKIN DISORDER
     Dosage: MASSAGE INTO SCALP AND LEAVE ON FOR A FEW MINUTES
     Route: 061
     Dates: start: 20170928
  14. SELENIUM [Concomitant]
     Active Substance: SELENIUM
     Dosage: USE AS DIRECTED
     Dates: start: 20170515

REACTIONS (2)
  - Somnolence [Unknown]
  - Hypoacusis [Unknown]

NARRATIVE: CASE EVENT DATE: 20170928
